FAERS Safety Report 6661751-1 (Version None)
Quarter: 2010Q1

REPORT INFORMATION
  Report Type: 
  Country: None (occurrence: None)
  Receive Date: 20100331
  Receipt Date: 20090608
  Transmission Date: 20100710
  Serious: No
  Sender: FDA-Public Use
  Company Number: US-BRISTOL-MYERS SQUIBB COMPANY-14642763

PATIENT
  Sex: Female

DRUGS (7)
  1. ERBITUX [Suspect]
     Indication: COLORECTAL CANCER METASTATIC
     Dosage: LODING DOSE: 635 MG IV/120MIN MAINTENANCE DOSE:400MG/1HR WEEKLY
     Route: 042
     Dates: start: 20090521, end: 20090521
  2. BENADRYL [Concomitant]
     Indication: PREMEDICATION
  3. PEPCID [Concomitant]
     Indication: PREMEDICATION
  4. DECADRON [Concomitant]
     Indication: PREMEDICATION
  5. ALBUTEROL [Concomitant]
     Indication: PREMEDICATION
  6. SOLU-CORTEF [Concomitant]
     Indication: PREMEDICATION
  7. CLARITIN [Concomitant]
     Indication: PREMEDICATION

REACTIONS (1)
  - HYPERSENSITIVITY [None]
